FAERS Safety Report 11941901 (Version 2)
Quarter: 2016Q1

REPORT INFORMATION
  Report Type: Report from Study
  Country: US (occurrence: US)
  Receive Date: 20160124
  Receipt Date: 20160222
  Transmission Date: 20160526
  Serious: Yes (Hospitalization)
  Sender: FDA-Public Use
  Company Number: US-BIOGEN-2015BI143302

PATIENT
  Age: 68 Year
  Sex: Female

DRUGS (2)
  1. TYSABRI [Suspect]
     Active Substance: NATALIZUMAB
     Route: 042
  2. TYSABRI [Suspect]
     Active Substance: NATALIZUMAB
     Indication: MULTIPLE SCLEROSIS
     Route: 042
     Dates: start: 20140725, end: 20150922

REACTIONS (5)
  - Meningitis [Recovered/Resolved]
  - Fear [Unknown]
  - Seizure [Recovered/Resolved]
  - Acute kidney injury [Unknown]
  - Carotid bruit [Unknown]

NARRATIVE: CASE EVENT DATE: 201509
